FAERS Safety Report 15294447 (Version 2)
Quarter: 2018Q4

REPORT INFORMATION
  Report Type: Report from Study
  Country: US (occurrence: US)
  Receive Date: 20180820
  Receipt Date: 20181017
  Transmission Date: 20190204
  Serious: No
  Sender: FDA-Public Use
  Company Number: PHEH2018US033588

PATIENT
  Sex: Female

DRUGS (1)
  1. TYKERB [Suspect]
     Active Substance: LAPATINIB DITOSYLATE
     Indication: PRODUCT USED FOR UNKNOWN INDICATION
     Route: 065

REACTIONS (8)
  - Tongue discolouration [Unknown]
  - Eye colour change [Unknown]
  - Asthenia [Unknown]
  - Skin discolouration [Unknown]
  - Lip discolouration [Unknown]
  - Urinary tract infection [Unknown]
  - Gait disturbance [Unknown]
  - Malaise [Unknown]
